FAERS Safety Report 7893481-2 (Version None)
Quarter: 2011Q4

REPORT INFORMATION
  Report Type: 
  Country: None (occurrence: None)
  Receive Date: 20111104
  Receipt Date: 20111026
  Transmission Date: 20120403
  Serious: No
  Sender: FDA-Public Use
  Company Number: US-B.I. PHARMACEUTICALS,INC./RIDGEFIELD-2011-BP-05945BP

PATIENT
  Age: 79 Year
  Sex: Male

DRUGS (6)
  1. PROVENTIL [Concomitant]
     Indication: ASTHMA
     Route: 048
  2. ALBUTEROL [Concomitant]
     Indication: ASTHMA
  3. SYMBICORT [Concomitant]
     Indication: ASTHMA
     Route: 048
     Dates: start: 20100101
  4. PRADAXA [Suspect]
     Indication: ATRIAL FIBRILLATION
     Dosage: 300 MG
     Route: 048
     Dates: start: 20110225, end: 20111001
  5. PREVACID [Concomitant]
     Indication: HIATUS HERNIA
     Route: 048
     Dates: start: 20080101
  6. SINGULAIR [Concomitant]
     Indication: ASTHMA
     Route: 048

REACTIONS (4)
  - CHEST PAIN [None]
  - DYSPEPSIA [None]
  - HAEMORRHAGE [None]
  - BLOOD URINE PRESENT [None]
